FAERS Safety Report 7391145-5 (Version None)
Quarter: 2011Q2

REPORT INFORMATION
  Report Type: 
  Country: None (occurrence: None)
  Receive Date: 20110404
  Receipt Date: 20110324
  Transmission Date: 20111010
  Serious: Yes (Hospitalization, Other)
  Sender: FDA-Public Use
  Company Number: US-AMGEN-USASP2010008980

PATIENT
  Age: 67 Year
  Sex: Male

DRUGS (1)
  1. EPOGEN [Suspect]
     Indication: HAEMODIALYSIS

REACTIONS (7)
  - LETHARGY [None]
  - HIV TEST POSITIVE [None]
  - ARTHRALGIA [None]
  - STAPHYLOCOCCAL INFECTION [None]
  - ABASIA [None]
  - PYREXIA [None]
  - BLOOD PRESSURE INCREASED [None]
